FAERS Safety Report 25030759 (Version 1)
Quarter: 2025Q1

REPORT INFORMATION
  Report Type: Spontaneous
  Country: IN (occurrence: IN)
  Receive Date: 20250303
  Receipt Date: 20250303
  Transmission Date: 20250408
  Serious: Yes (Death, Other)
  Sender: Steriscience PTE
  Company Number: IN-STERISCIENCE B.V.-2025-ST-000320

PATIENT
  Age: 3 Decade
  Sex: Female

DRUGS (6)
  1. METHYLENE BLUE [Suspect]
     Active Substance: METHYLENE BLUE
     Indication: Poisoning
     Route: 042
  2. CHARCOAL [Suspect]
     Active Substance: ACTIVATED CHARCOAL
     Indication: Poisoning
     Route: 065
  3. PENICILLAMINE [Suspect]
     Active Substance: PENICILLAMINE
     Indication: Poisoning
     Dosage: 500 MILLIGRAM, Q6H
     Route: 048
  4. PANTOPRAZOLE [Suspect]
     Active Substance: PANTOPRAZOLE
     Indication: Gastrointestinal disorder
     Route: 042
  5. PANTOPRAZOLE [Suspect]
     Active Substance: PANTOPRAZOLE
     Indication: Poisoning
  6. HUMAN RED BLOOD CELL [Concomitant]
     Active Substance: HUMAN RED BLOOD CELL
     Indication: Transfusion
     Route: 065

REACTIONS (2)
  - Condition aggravated [Fatal]
  - Drug ineffective for unapproved indication [Fatal]
